FAERS Safety Report 15262099 (Version 1)
Quarter: 2018Q3

REPORT INFORMATION
  Report Type: Report from Study
  Country: US (occurrence: US)
  Receive Date: 20180809
  Receipt Date: 20180809
  Transmission Date: 20181010
  Serious: Yes (Hospitalization)
  Sender: FDA-Public Use
  Company Number: US-BAYER-2018-143288

PATIENT
  Age: 29 Year
  Sex: Female

DRUGS (16)
  1. HYDROMORPHONE [Concomitant]
     Active Substance: HYDROMORPHONE
  2. ROBITUSSIN FOR CHESTY COUGHS WITH CONGEST [Concomitant]
     Active Substance: GUAIFENESIN\PSEUDOEPHEDRINE HYDROCHLORIDE
  3. PROAIR HFA [Concomitant]
     Active Substance: ALBUTEROL SULFATE
  4. DEXAMETHASONE. [Concomitant]
     Active Substance: DEXAMETHASONE
  5. TYLENOL [Concomitant]
     Active Substance: ACETAMINOPHEN
  6. STIVARGA [Suspect]
     Active Substance: REGORAFENIB
     Indication: RECTAL CANCER
     Dosage: DAILY DOSE 160 MG
     Route: 048
     Dates: start: 20180709, end: 201807
  7. COMPAZINE [Concomitant]
     Active Substance: PROCHLORPERAZINE MALEATE
  8. IBU [Concomitant]
     Active Substance: IBUPROFEN
  9. ONDANSETRON [Concomitant]
     Active Substance: ONDANSETRON
  10. MIRALAX [Concomitant]
     Active Substance: POLYETHYLENE GLYCOL 3350
  11. DRONABINOL. [Concomitant]
     Active Substance: DRONABINOL
  12. MAGNESIUM OXIDE. [Concomitant]
     Active Substance: MAGNESIUM OXIDE
  13. FENTANYL. [Concomitant]
     Active Substance: FENTANYL
  14. NITROSTAT [Concomitant]
     Active Substance: NITROGLYCERIN
  15. FAMOTIDINE. [Concomitant]
     Active Substance: FAMOTIDINE
  16. AMLODIPINE [Concomitant]
     Active Substance: AMLODIPINE BESYLATE

REACTIONS (2)
  - Constipation [None]
  - Dehydration [None]

NARRATIVE: CASE EVENT DATE: 201807
